FAERS Safety Report 6359382-6 (Version None)
Quarter: 2009Q3

REPORT INFORMATION
  Report Type: 
  Country: None (occurrence: None)
  Receive Date: 20090917
  Receipt Date: 20090915
  Transmission Date: 20100115
  Serious: Yes (Hospitalization)
  Sender: FDA-Public Use
  Company Number: US-NOVOPROD-289662

PATIENT
  Age: 61 Year
  Sex: Female
  Weight: 96.145 kg

DRUGS (5)
  1. LEVEMIR [Suspect]
     Indication: DIABETES MELLITUS
     Dosage: 30 IU, QD
     Route: 058
     Dates: start: 20081001
  2. NOVOLOG [Suspect]
     Indication: DIABETES MELLITUS
     Route: 058
  3. SYNTHROID [Concomitant]
     Indication: HYPOTHYROIDISM
     Dosage: 175 MG, QD
     Route: 048
  4. BYETTA [Concomitant]
     Indication: DIABETES MELLITUS
     Dosage: 20 IU, QD
  5. LEVAQUIN [Concomitant]
     Indication: BLADDER DISORDER
     Dosage: 250 MG, QD
     Route: 048

REACTIONS (6)
  - BLINDNESS TRANSIENT [None]
  - BLOOD GLUCOSE INCREASED [None]
  - CONDITION AGGRAVATED [None]
  - DEVICE MALFUNCTION [None]
  - NEUROPATHY PERIPHERAL [None]
  - WRONG TECHNIQUE IN DRUG USAGE PROCESS [None]
